FAERS Safety Report 5302486-7 (Version None)
Quarter: 2007Q2

REPORT INFORMATION
  Report Type: 
  Country: None (occurrence: None)
  Receive Date: 20070412
  Receipt Date: 20070303
  Transmission Date: 20071010
  Serious: Yes (Hospitalization)
  Sender: FDA-Public Use
  Company Number: POMP-10971

PATIENT
  Age: 27 Year
  Sex: Female
  Weight: 43 kg

DRUGS (2)
  1. MYOZYME [Suspect]
     Indication: GLYCOGEN STORAGE DISEASE TYPE II
     Dosage: 800 MG Q2WKS IV
     Route: 042
     Dates: start: 20060427, end: 20070201
  2. MYOZYME [Suspect]
     Indication: GLYCOGEN STORAGE DISEASE TYPE II
     Dosage: 800 MG Q2WKS IV
     Route: 042
     Dates: start: 20070301

REACTIONS (10)
  - BODY TEMPERATURE INCREASED [None]
  - COUGH [None]
  - DYSPNOEA [None]
  - LEUKOPENIA [None]
  - LYMPHOCYTE COUNT INCREASED [None]
  - MALAISE [None]
  - MONOCYTE COUNT INCREASED [None]
  - NEUTROPENIA [None]
  - NEUTROPHIL COUNT DECREASED [None]
  - RESPIRATORY TRACT INFECTION VIRAL [None]
